FAERS Safety Report 12601392 (Version 1)
Quarter: 2016Q3

REPORT INFORMATION
  Report Type: Spontaneous
  Country: JP (occurrence: JP)
  Receive Date: 20160728
  Receipt Date: 20160728
  Transmission Date: 20161109
  Serious: Yes (Hospitalization)
  Sender: FDA-Public Use
  Company Number: JP-ASTRAZENECA-2016SE80765

PATIENT
  Age: 45 Year
  Sex: Female

DRUGS (8)
  1. SEROQUEL [Suspect]
     Active Substance: QUETIAPINE FUMARATE
     Indication: PRODUCT USED FOR UNKNOWN INDICATION
     Route: 048
     Dates: start: 2016
  2. SEROQUEL [Suspect]
     Active Substance: QUETIAPINE FUMARATE
     Indication: PRODUCT USED FOR UNKNOWN INDICATION
     Route: 048
     Dates: start: 20160702
  3. PAXIL [Concomitant]
     Active Substance: PAROXETINE HYDROCHLORIDE
     Route: 065
  4. AMOXAN [Concomitant]
     Active Substance: AMOXAPINE
     Route: 065
  5. SEROQUEL [Suspect]
     Active Substance: QUETIAPINE FUMARATE
     Indication: PRODUCT USED FOR UNKNOWN INDICATION
     Dosage: 50 MG EACH IN MORNING/NOON/NIGHT AND 150 MG BEFORE BED
     Route: 048
     Dates: start: 20160608
  6. SENIRAN [Concomitant]
     Active Substance: BROMAZEPAM
     Route: 065
  7. CONTOMIN [Concomitant]
     Active Substance: CHLORPROMAZINE
     Route: 065
  8. VEGETAMIN B [Concomitant]
     Active Substance: CHLORPROMAZINE HYDROCHLORIDE\PHENOBARBITAL\PROMETHAZINE
     Route: 065

REACTIONS (3)
  - Somnolence [Recovered/Resolved]
  - Intentional product misuse [Unknown]
  - Pneumonia [Recovered/Resolved]
